FAERS Safety Report 15206281 (Version 1)
Quarter: 2018Q3

REPORT INFORMATION
  Report Type: Report from Study
  Country: NL (occurrence: NL)
  Receive Date: 20180727
  Receipt Date: 20180727
  Transmission Date: 20181010
  Serious: Yes (Other)
  Sender: FDA-Public Use
  Company Number: NL-TEVA-2018-NL-929629

PATIENT
  Sex: Female

DRUGS (4)
  1. COPAXONE [Suspect]
     Active Substance: GLATIRAMER ACETATE
     Indication: MULTIPLE SCLEROSIS
     Route: 058
  2. RIVOTRIL [Concomitant]
     Active Substance: CLONAZEPAM
  3. NEUPRO PATCHES [Concomitant]
  4. ETHINYL ESTRADIOL/LEVONORGESTREL 0.03/0.15 MG [Concomitant]
     Dosage: 1 DOSAGE FORMS DAILY; 0.03/0.15 MG

REACTIONS (1)
  - Multiple sclerosis [Not Recovered/Not Resolved]
